FAERS Safety Report 4695866-4 (Version None)
Quarter: 2005Q2

REPORT INFORMATION
  Report Type: 
  Country: None (occurrence: None)
  Receive Date: 20050621
  Receipt Date: 20050609
  Transmission Date: 20051028
  Serious: Yes (Hospitalization)
  Sender: FDA-Public Use
  Company Number: FR-SANOFI-SYNTHELABO-A02200501512

PATIENT
  Age: 60 Year
  Sex: Female

DRUGS (9)
  1. MEPRONIZINE [Suspect]
     Route: 048
     Dates: start: 20050517, end: 20050517
  2. STILNOX [Suspect]
     Route: 048
     Dates: start: 20050517, end: 20050517
  3. ANAFRANIL [Suspect]
     Route: 048
     Dates: start: 20050517, end: 20050517
  4. RISPERDAL [Suspect]
     Route: 048
     Dates: start: 20050517, end: 20050517
  5. MEPRONIZINE [Concomitant]
     Indication: DEPRESSION
     Dosage: UNK
     Route: 048
     Dates: end: 20050516
  6. ANAFRANIL [Concomitant]
     Indication: DEPRESSION
     Dosage: UNK
     Route: 048
     Dates: end: 20050516
  7. RISPERDAL [Concomitant]
     Indication: DEPRESSION
     Dosage: UNK
     Route: 048
     Dates: end: 20050516
  8. TEMESTA [Concomitant]
     Indication: DEPRESSION
     Dosage: UNK
     Route: 048
     Dates: end: 20050516
  9. PROPOFOL [Concomitant]
     Dosage: UNK
     Route: 065

REACTIONS (12)
  - DYSKINESIA [None]
  - DYSSTASIA [None]
  - FALL [None]
  - HEADACHE [None]
  - HYPERHIDROSIS [None]
  - HYPERTENSION [None]
  - INSOMNIA [None]
  - MULTIPLE DRUG OVERDOSE [None]
  - MUSCLE RIGIDITY [None]
  - NEUROLEPTIC MALIGNANT SYNDROME [None]
  - PYREXIA [None]
  - TREMOR [None]
